FAERS Safety Report 6404108-0 (Version None)
Quarter: 2009Q4

REPORT INFORMATION
  Report Type: 
  Country: None (occurrence: None)
  Receive Date: 20091016
  Receipt Date: 20090915
  Transmission Date: 20100525
  Serious: No
  Sender: FDA-Public Use
  Company Number: US-ALEXION-A200900754

PATIENT
  Sex: Female

DRUGS (6)
  1. SOLIRIS [Suspect]
     Indication: PAROXYSMAL NOCTURNAL HAEMOGLOBINURIA
     Dosage: 600 MG, QW
     Route: 042
     Dates: start: 20071018, end: 20071108
  2. SOLIRIS [Suspect]
     Dosage: 900 MG, Q2W
     Route: 042
     Dates: start: 20071115
  3. SOLIRIS [Suspect]
     Dosage: 900 MG, Q12D
     Route: 042
  4. FOLIC ACID [Concomitant]
     Dosage: UNK
  5. CYCLOSPORINE [Concomitant]
     Dosage: UNK
  6. VITAMINS NOS [Concomitant]
     Dosage: UNK

REACTIONS (2)
  - NASOPHARYNGITIS [None]
  - PYREXIA [None]
